FAERS Safety Report 10331924 (Version 1)
Quarter: 2014Q3

REPORT INFORMATION
  Report Type: Spontaneous
  Country: US (occurrence: US)
  Receive Date: 20140722
  Receipt Date: 20140722
  Transmission Date: 20150326
  Serious: Yes (Hospitalization, Disabling)
  Sender: FDA-Public Use
  Company Number: US-FRI-1000069070

PATIENT
  Age: 44 Year
  Sex: Male
  Weight: 63.49 kg

DRUGS (1)
  1. SAPHRIS [Suspect]
     Active Substance: ASENAPINE MALEATE
     Indication: PSYCHOTIC DISORDER
     Dosage: 10 MG AT BEDTIME
     Route: 060
     Dates: start: 20080211, end: 20120918

REACTIONS (1)
  - Mental impairment [Unknown]

NARRATIVE: CASE EVENT DATE: 20120813
